FAERS Safety Report 5925885-9 (Version None)
Quarter: 2008Q4

REPORT INFORMATION
  Report Type: 
  Country: None (occurrence: None)
  Receive Date: 20081021
  Receipt Date: 20081009
  Transmission Date: 20090506
  Serious: Yes (Hospitalization, Other)
  Sender: FDA-Public Use
  Company Number: US-PFIZER INC-2008045778

PATIENT
  Sex: Male
  Weight: 106.6 kg

DRUGS (11)
  1. CHANTIX [Suspect]
     Indication: SMOKING CESSATION THERAPY
     Route: 048
     Dates: start: 20080201, end: 20080501
  2. VICODIN [Suspect]
     Indication: MUSCULOSKELETAL PAIN
     Dates: start: 20080520
  3. LISINOPRIL [Concomitant]
     Indication: HYPERTENSION
  4. TOPROL-XL [Concomitant]
     Indication: HYPERTENSION
  5. NORVASC [Concomitant]
     Indication: HYPERTENSION
  6. PROTONIX [Concomitant]
  7. PLAVIX [Concomitant]
  8. ACETYLSALICYLIC ACID SRT [Concomitant]
  9. LIPITOR [Concomitant]
  10. PAXIL [Concomitant]
  11. TOPROL-XL [Concomitant]

REACTIONS (6)
  - DIZZINESS [None]
  - MOTION SICKNESS [None]
  - MUSCULOSKELETAL PAIN [None]
  - ROAD TRAFFIC ACCIDENT [None]
  - STENT PLACEMENT [None]
  - VERTIGO [None]
